FAERS Safety Report 12891341 (Version 1)
Quarter: 2016Q4

REPORT INFORMATION
  Report Type: Report from Study
  Country: IE (occurrence: IE)
  Receive Date: 20161028
  Receipt Date: 20161028
  Transmission Date: 20170207
  Serious: Yes (Other)
  Sender: FDA-Public Use
  Company Number: IE-AMGEN-IRLSL2016147109

PATIENT
  Age: 72 Year
  Sex: Male

DRUGS (11)
  1. ARANESP [Suspect]
     Active Substance: DARBEPOETIN ALFA
     Indication: CHRONIC KIDNEY DISEASE
     Dosage: 30 MUG, QWK
     Route: 058
     Dates: start: 20151023
  2. ONE ALPHA [Concomitant]
     Active Substance: ALFACALCIDOL
     Dosage: 0.25 MUG, QD
  3. PARALIEF [Concomitant]
     Dosage: 500 MG, AS NECESSARY
  4. SODIUM BICARBONATE. [Concomitant]
     Active Substance: SODIUM BICARBONATE
     Dosage: 1800 MG, QD
  5. XALATAN [Concomitant]
     Active Substance: LATANOPROST
     Dosage: 0.005 MG, QD
  6. IMURAN [Concomitant]
     Active Substance: AZATHIOPRINE
     Dosage: 50 MG, QD
  7. GALFER [Concomitant]
     Active Substance: IRON
     Dosage: 305 MG, QD
  8. AZOPT [Concomitant]
     Active Substance: BRINZOLAMIDE
     Dosage: 10 MG, QD
  9. EMAZOLE [Concomitant]
     Dosage: 40 MG, QD
  10. TAMNEXYL [Concomitant]
     Dosage: 400 MG, QD
  11. SERETIDE [Concomitant]
     Active Substance: FLUTICASONE PROPIONATE\SALMETEROL XINAFOATE
     Dosage: 250 MUG, BID

REACTIONS (1)
  - Lung neoplasm malignant [Unknown]

NARRATIVE: CASE EVENT DATE: 201604
